FAERS Safety Report 4965070-0 (Version None)
Quarter: 2006Q1

REPORT INFORMATION
  Report Type: 
  Country: None (occurrence: None)
  Receive Date: 20060201
  Receipt Date: 20051010
  Transmission Date: 20060701
  Serious: No
  Sender: FDA-Public Use
  Company Number: 2005PV003018

PATIENT
  Age: 62 Year
  Sex: Female
  Weight: 128.368 kg

DRUGS (7)
  1. BYETTA [Suspect]
     Indication: DIABETES MELLITUS NON-INSULIN-DEPENDENT
     Dosage: 5 MCG;BID;SC
     Route: 058
     Dates: start: 20050925
  2. AMARYL [Concomitant]
  3. NORVASC [Concomitant]
  4. GLUCOPHAGE [Concomitant]
  5. AVANDIA [Concomitant]
  6. SYNTHROID [Concomitant]
  7. VYTORINC [Concomitant]

REACTIONS (5)
  - DIZZINESS [None]
  - FEELING ABNORMAL [None]
  - MALAISE [None]
  - NAUSEA [None]
  - WEIGHT DECREASED [None]
